FAERS Safety Report 8979632 (Version 2)
Quarter: 2014Q1

REPORT INFORMATION
  Report Type: Report from Study
  Country: US (occurrence: US)
  Receive Date: 20121221
  Receipt Date: 20140307
  Transmission Date: 20141002
  Serious: Yes (Other)
  Sender: FDA-Public Use
  Company Number: US-US-EMD SERONO, INC.-7180673

PATIENT
  Sex: Male
  Weight: 33 kg

DRUGS (4)
  1. CONCERTA [Concomitant]
     Indication: ATTENTION DEFICIT/HYPERACTIVITY DISORDER
  2. SAIZEN [(SOMATROPIN (RDNA ORIGIN) FOR INJECTION)] [Suspect]
     Indication: GROWTH RETARDATION
     Dates: start: 20090205
  3. SAIZEN [(SOMATROPIN (RDNA ORIGIN) FOR INJECTION)] [Suspect]
  4. SAIZEN [(SOMATROPIN (RDNA ORIGIN) FOR INJECTION)] [Suspect]

REACTIONS (5)
  - Exophthalmos [Recovering/Resolving]
  - Myopia [Unknown]
  - Nocturia [Unknown]
  - Eczema [Recovering/Resolving]
  - Insulin-like growth factor increased [Recovered/Resolved]
